FAERS Safety Report 7052675-9 (Version None)
Quarter: 2010Q4

REPORT INFORMATION
  Report Type: 
  Country: None (occurrence: None)
  Receive Date: 20101019
  Receipt Date: 20101011
  Transmission Date: 20110411
  Serious: Yes (Hospitalization, Other)
  Sender: FDA-Public Use
  Company Number: US-AMGEN INC.-KDL444903

PATIENT

DRUGS (1)
  1. ENBREL [Suspect]
     Indication: RHEUMATOID ARTHRITIS
     Dosage: 25 MG, UNK
     Route: 058
     Dates: start: 20010901

REACTIONS (4)
  - HEPATIC NEOPLASM MALIGNANT [None]
  - PULMONARY THROMBOSIS [None]
  - RHEUMATOID ARTHRITIS [None]
  - SMALL CELL LUNG CANCER STAGE UNSPECIFIED [None]
